FAERS Safety Report 4710176-4 (Version None)
Quarter: 2005Q3

REPORT INFORMATION
  Report Type: 
  Country: None (occurrence: None)
  Receive Date: 20050707
  Receipt Date: 20050627
  Transmission Date: 20060218
  Serious: Yes (Disabling, Other)
  Sender: FDA-Public Use
  Company Number: 2005076594

PATIENT
  Age: 74 Year
  Sex: Female

DRUGS (6)
  1. LIPITOR [Suspect]
     Indication: BLOOD CHOLESTEROL INCREASED
     Dosage: ORAL
     Route: 048
  2. CRESTOR [Suspect]
     Indication: ILL-DEFINED DISORDER
  3. ATENOLOL [Concomitant]
  4. VIOXX [Concomitant]
  5. LOTREL [Concomitant]
  6. NAPROXEN [Concomitant]

REACTIONS (5)
  - DIFFICULTY IN WALKING [None]
  - DRUG DOSE OMISSION [None]
  - MYALGIA [None]
  - PAIN IN EXTREMITY [None]
  - SWELLING [None]
